FAERS Safety Report 9067221 (Version 1)
Quarter: 2013Q1

REPORT INFORMATION
  Report Type: Spontaneous
  Country: US (occurrence: US)
  Receive Date: 20130131
  Receipt Date: 20130131
  Transmission Date: 20140127
  Serious: Yes (Hospitalization)
  Sender: FDA-Public Use
  Company Number: US-ABBOTT-12P-163-0998944-00

PATIENT
  Sex: Female

DRUGS (2)
  1. HUMIRA [Suspect]
     Indication: PSORIASIS
     Route: 058
     Dates: start: 201209, end: 201209
  2. HUMIRA [Suspect]
     Dates: start: 20121002, end: 20121002

REACTIONS (2)
  - Cellulitis [Recovering/Resolving]
  - Pustular psoriasis [Recovering/Resolving]
